FAERS Safety Report 9337261 (Version 8)
Quarter: 2024Q2

REPORT INFORMATION
  Report Type: Report from Study
  Country: US (occurrence: US)
  Receive Date: 20130607
  Receipt Date: 20240626
  Transmission Date: 20240716
  Serious: Yes (Hospitalization, Other)
  Sender: FDA-Public Use
  Company Number: US-JNJFOC-20130512354

PATIENT
  Age: 57 Year
  Sex: Male
  Weight: 83.536 kg

DRUGS (4)
  1. STELARA [Suspect]
     Active Substance: USTEKINUMAB
     Indication: Psoriasis
     Route: 058
     Dates: start: 20130412, end: 20150403
  2. REMICADE [Suspect]
     Active Substance: INFLIXIMAB
     Indication: Psoriasis
     Route: 041
     Dates: start: 20100723, end: 20101220
  3. CYCLOSPORINE [Suspect]
     Active Substance: CYCLOSPORINE
     Indication: Product used for unknown indication
  4. NORVASC [Concomitant]
     Active Substance: AMLODIPINE BESYLATE
     Indication: Hypertension
     Dates: end: 201305

REACTIONS (11)
  - Transient ischaemic attack [Recovered/Resolved]
  - Acute kidney injury [Unknown]
  - Malignant hypertension [Recovered/Resolved]
  - Chronic kidney disease [Unknown]
  - Basal cell carcinoma [Unknown]
  - Psoriatic arthropathy [Unknown]
  - Nausea [Unknown]
  - Peripheral swelling [Unknown]
  - Arthralgia [Unknown]
  - Myalgia [Unknown]
  - Asthenia [Unknown]

NARRATIVE: CASE EVENT DATE: 20130207
